FAERS Safety Report 8008127-2 (Version None)
Quarter: 2011Q4

REPORT INFORMATION
  Report Type: 
  Country: None (occurrence: None)
  Receive Date: 20111227
  Receipt Date: 20111223
  Transmission Date: 20120403
  Serious: Yes (Life-Threatening, Hospitalization, Other)
  Sender: FDA-Public Use
  Company Number: PHEH2011US012059

PATIENT
  Sex: Male

DRUGS (10)
  1. SPIRIVA [Concomitant]
  2. MULTI-VITAMINS [Concomitant]
  3. EXJADE [Suspect]
     Indication: MYELODYSPLASTIC SYNDROME
     Dosage: 2250 MG, DAILY
     Route: 048
     Dates: start: 20101029, end: 20111004
  4. VIDAZA [Concomitant]
  5. VITAMIN D [Concomitant]
  6. ADVAIR DISKUS 100/50 [Concomitant]
  7. CHEMOTHERAPEUTICS [Concomitant]
  8. VITAMIN C [Concomitant]
  9. OMEPRAZOLE [Concomitant]
  10. PREDNISONE [Concomitant]
     Dosage: 5 MG, DAILY

REACTIONS (39)
  - PLEURAL EFFUSION [None]
  - PULMONARY HYPERTENSION [None]
  - ATELECTASIS [None]
  - NEOPLASM PROGRESSION [None]
  - PAIN IN EXTREMITY [None]
  - PANCYTOPENIA [None]
  - SPLENOMEGALY [None]
  - NEOPLASM MALIGNANT [None]
  - OXYGEN SATURATION DECREASED [None]
  - DIASTOLIC DYSFUNCTION [None]
  - AORTIC ARTERIOSCLEROSIS [None]
  - PNEUMONIA [None]
  - PULMONARY FIBROSIS [None]
  - LUNG INFILTRATION [None]
  - ACUTE MYELOID LEUKAEMIA [None]
  - THROMBOCYTOPENIA [None]
  - TERMINAL STATE [None]
  - CHEST DISCOMFORT [None]
  - WHITE BLOOD CELL COUNT DECREASED [None]
  - MITRAL VALVE INCOMPETENCE [None]
  - ASCITES [None]
  - ASTHENIA [None]
  - BONE MARROW RETICULIN FIBROSIS [None]
  - VENTRICULAR HYPOKINESIA [None]
  - FATIGUE [None]
  - NON-HODGKIN'S LYMPHOMA [None]
  - LEUKAEMIA [None]
  - ANAEMIA [None]
  - HEPATIC CIRRHOSIS [None]
  - BUNDLE BRANCH BLOCK [None]
  - HYPONATRAEMIA [None]
  - NAUSEA [None]
  - SEPSIS [None]
  - CHEST PAIN [None]
  - DYSPNOEA [None]
  - TACHYCARDIA [None]
  - CONDUCTION DISORDER [None]
  - TRICUSPID VALVE INCOMPETENCE [None]
  - FALL [None]
